FAERS Safety Report 5120512-5 (Version None)
Quarter: 2006Q4

REPORT INFORMATION
  Report Type: 
  Country: None (occurrence: None)
  Receive Date: 20061004
  Receipt Date: 20060719
  Transmission Date: 20070319
  Serious: Yes (Other)
  Sender: FDA-Public Use
  Company Number: FR-AVENTIS-200613951EU

PATIENT
  Age: 78 Year
  Sex: Female

DRUGS (53)
  1. ENOXAPARIN SODIUM [Suspect]
     Indication: THROMBOSIS PROPHYLAXIS
     Route: 058
     Dates: start: 20060625, end: 20060704
  2. KARDEGIC                           /00002703/ [Concomitant]
     Indication: CEREBROVASCULAR ACCIDENT PROPHYLAXIS
     Route: 048
     Dates: start: 20020101, end: 20060625
  3. FLECAINIDE ACETATE [Concomitant]
     Indication: ARRHYTHMIA
     Dates: start: 19980101, end: 20060625
  4. BENAZEPRIL HCL [Concomitant]
     Indication: HYPERTENSION
     Dates: start: 19980101, end: 20060629
  5. ALPRESS [Concomitant]
     Indication: HYPERTENSION
     Dates: start: 19980101, end: 20060629
  6. ALPRESS [Concomitant]
     Dates: start: 20060630, end: 20060630
  7. ALPRESS [Concomitant]
     Dates: start: 20060701, end: 20060701
  8. DETRUSITOL                         /01350202/ [Concomitant]
     Indication: URINARY INCONTINENCE
     Dates: start: 20050501, end: 20060628
  9. DETRUSITOL                         /01350202/ [Concomitant]
     Dates: start: 20060629, end: 20060629
  10. DETRUSITOL                         /01350202/ [Concomitant]
     Dates: start: 20060630, end: 20060630
  11. DETRUSITOL                         /01350202/ [Concomitant]
     Dates: start: 20060701, end: 20060705
  12. DETRUSITOL                         /01350202/ [Concomitant]
     Dates: start: 20060706
  13. PIASCLEDINE                        /01305801/ [Concomitant]
     Indication: OSTEOARTHRITIS
     Dates: start: 20010101
  14. MOPRAL                             /00661201/ [Concomitant]
     Indication: ULCER
     Route: 042
     Dates: start: 19930101, end: 20060702
  15. MOPRAL                             /00661201/ [Concomitant]
     Route: 042
     Dates: start: 20060703, end: 20060703
  16. DAFLON                             /00426001/ [Concomitant]
     Indication: VENOUS INSUFFICIENCY
     Dates: start: 19900101, end: 20060628
  17. DAFLON                             /00426001/ [Concomitant]
     Dates: start: 19900629, end: 20060629
  18. DAFLON                             /00426001/ [Concomitant]
     Dates: start: 20060630, end: 20060630
  19. DAFLON                             /00426001/ [Concomitant]
     Dates: start: 20060703, end: 20060704
  20. DAFLON                             /00426001/ [Concomitant]
     Dates: start: 20060705
  21. VASTAREL [Concomitant]
     Indication: VERTIGO
     Dates: start: 19900101, end: 20060628
  22. VASTAREL [Concomitant]
     Dates: start: 20060629, end: 20060629
  23. VASTAREL [Concomitant]
     Dates: start: 20060701, end: 20060701
  24. VASTAREL [Concomitant]
     Dates: start: 20060702, end: 20060702
  25. SPASFON                            /00765801/ [Concomitant]
     Indication: COLITIS
     Route: 048
     Dates: start: 20050101, end: 20060630
  26. SPASFON                            /00765801/ [Concomitant]
     Indication: PROPHYLAXIS
     Route: 048
     Dates: start: 20050101, end: 20060630
  27. SPASFON                            /00765801/ [Concomitant]
     Route: 042
     Dates: start: 20060701, end: 20060704
  28. SPASFON                            /00765801/ [Concomitant]
     Route: 048
     Dates: start: 20060705
  29. SPASMINE                           /01561701/ [Concomitant]
     Indication: INSOMNIA
     Dates: start: 20050101, end: 20060628
  30. SPASMINE                           /01561701/ [Concomitant]
     Indication: PROPHYLAXIS
     Dates: start: 20050101, end: 20060628
  31. SPASMINE                           /01561701/ [Concomitant]
     Dates: start: 20060629, end: 20060629
  32. SPASMINE                           /01561701/ [Concomitant]
     Dates: start: 20060630, end: 20060630
  33. SPASMINE                           /01561701/ [Concomitant]
     Dates: start: 20060702, end: 20060702
  34. LECTIL [Concomitant]
     Indication: VERTIGO
     Dates: start: 20050101, end: 20060630
  35. LECTIL [Concomitant]
     Dates: start: 20060702, end: 20060703
  36. LECTIL [Concomitant]
     Dates: start: 20060704, end: 20060704
  37. TARDYFERON                         /00023503/ [Concomitant]
     Indication: ANAEMIA PROPHYLAXIS
     Dates: start: 20060529, end: 20060625
  38. PRIMPERAN                          /00041901/ [Concomitant]
     Indication: NAUSEA
     Route: 048
     Dates: start: 20060627, end: 20060627
  39. PRIMPERAN                          /00041901/ [Concomitant]
     Indication: VOMITING
     Route: 048
     Dates: start: 20060627, end: 20060627
  40. NORMACOL                           /00119401/ [Concomitant]
     Indication: CONSTIPATION
     Dates: start: 20060628, end: 20060629
  41. TOPALGIC [Concomitant]
     Indication: PAIN
     Dates: start: 20060628, end: 20060629
  42. DAFALGAN                           /00020001/ [Concomitant]
     Indication: PAIN
     Dates: start: 20060628, end: 20060702
  43. ACETAMINOPHEN [Concomitant]
     Indication: PAIN
     Dates: start: 20060627, end: 20060627
  44. COMPENSAL [Concomitant]
     Indication: FLUID REPLACEMENT
     Dates: start: 20060626, end: 20060626
  45. CORDARONE                          /00133102/ [Concomitant]
     Indication: PROPHYLAXIS
     Dates: start: 19980101, end: 20060629
  46. CORDARONE                          /00133102/ [Concomitant]
     Indication: TACHYCARDIA
     Dates: start: 19980101, end: 20060629
  47. CORDARONE                          /00133102/ [Concomitant]
     Dates: start: 20060630, end: 20060630
  48. CORDARONE                          /00133102/ [Concomitant]
     Dates: start: 20060701
  49. FURADANTIN [Concomitant]
     Indication: CYSTITIS
     Dates: start: 20060614, end: 20060623
  50. LEXOMIL [Concomitant]
     Indication: ANXIETY
     Dates: start: 20060628, end: 20060628
  51. MAGNESIUM [Concomitant]
     Indication: BLOOD MAGNESIUM DECREASED
     Dates: start: 20060627, end: 20060628
  52. MAGNESIUM [Concomitant]
     Dates: start: 20060630, end: 20060703
  53. MAGNESIUM [Concomitant]
     Dates: start: 20060705

REACTIONS (2)
  - INTESTINAL OBSTRUCTION [None]
  - PANCREATITIS [None]
